FAERS Safety Report 8646113 (Version 4)
Quarter: 2013Q1

REPORT INFORMATION
  Report Type: Spontaneous
  Country: US (occurrence: US)
  Receive Date: 20120702
  Receipt Date: 20130123
  Transmission Date: 20140127
  Serious: Yes (Other)
  Sender: FDA-Public Use
  Company Number: US-ASTRAZENECA-2012SE41771

PATIENT
  Age: 63 Year
  Sex: Female

DRUGS (8)
  1. NEXIUM [Suspect]
     Route: 048
  2. NEXIUM [Suspect]
     Route: 048
  3. TOPROL XL [Suspect]
     Route: 048
  4. CRESTOR [Suspect]
     Route: 048
  5. AVISTA [Concomitant]
  6. CYMBALTA [Concomitant]
  7. FLEXERIL [Concomitant]
  8. VITAMIN D [Concomitant]

REACTIONS (7)
  - Lower limb fracture [Unknown]
  - Barrett^s oesophagus [Unknown]
  - Gastric disorder [Unknown]
  - Gastrooesophageal reflux disease [Unknown]
  - Dyspepsia [Unknown]
  - Chest pain [Unknown]
  - Drug dose omission [Unknown]
